FAERS Safety Report 14751326 (Version 4)
Quarter: 2018Q4

REPORT INFORMATION
  Report Type: Spontaneous
  Country: JP (occurrence: US)
  Receive Date: 20180412
  Receipt Date: 20181119
  Transmission Date: 20190204
  Serious: Yes (Death, Life-Threatening, Hospitalization, Other)
  Sender: FDA-Public Use
  Company Number: JP-BAYER-2018-070330

PATIENT
  Age: 55 Year
  Sex: Male
  Weight: 96 kg

DRUGS (22)
  1. APIXABAN [Suspect]
     Active Substance: APIXABAN
     Indication: CEREBROVASCULAR ACCIDENT PROPHYLAXIS
     Dosage: 5 MG, BID
     Route: 048
     Dates: start: 20151104
  2. ATELEC [Concomitant]
     Active Substance: CILNIDIPINE
     Dosage: UNK
     Dates: start: 20150406
  3. PRAVASTATIN SODIUM. [Concomitant]
     Active Substance: PRAVASTATIN SODIUM
     Dosage: UNK
     Dates: start: 20170529
  4. EICOSAPENTAENOIC ACID ETHYL ESTER [Concomitant]
     Active Substance: ICOSAPENT ETHYL
  5. APIXABAN [Suspect]
     Active Substance: APIXABAN
     Indication: CEREBROVASCULAR ACCIDENT PROPHYLAXIS
     Dosage: 5 MG, BID
     Dates: start: 20180109
  6. BAYASPIRIN 100 MG [Suspect]
     Active Substance: ASPIRIN
     Indication: ATRIAL FIBRILLATION
     Dosage: 100 MG, QD
     Route: 048
     Dates: start: 20171128
  7. METFORMIN HYDROCHLORIDE. [Concomitant]
     Active Substance: METFORMIN HYDROCHLORIDE
     Route: 065
  8. NEXIUM [Suspect]
     Active Substance: ESOMEPRAZOLE MAGNESIUM
     Indication: PROPHYLAXIS AGAINST GASTROINTESTINAL ULCER
     Dosage: 20 MG, QD
     Route: 048
     Dates: start: 20171129, end: 20180109
  9. FEBUXOSTAT. [Concomitant]
     Active Substance: FEBUXOSTAT
  10. METFORMIN HYDROCHLORIDE. [Concomitant]
     Active Substance: METFORMIN HYDROCHLORIDE
     Dosage: UNK
     Dates: start: 20150406
  11. PRAVASTATIN SODIUM. [Concomitant]
     Active Substance: PRAVASTATIN SODIUM
  12. INSULIN DEGLUDEC [Concomitant]
     Active Substance: INSULIN DEGLUDEC
  13. METFORMIN HYDROCHLORIDE. [Concomitant]
     Active Substance: METFORMIN HYDROCHLORIDE
  14. REPAGLINIDE. [Concomitant]
     Active Substance: REPAGLINIDE
  15. BISOPROLOL FUMARATE. [Suspect]
     Active Substance: BISOPROLOL FUMARATE
     Indication: ATRIAL FIBRILLATION
     Dosage: 2.5 MG, QD
     Route: 048
     Dates: start: 20151104, end: 20180109
  16. BISOPROLOL FUMARATE. [Suspect]
     Active Substance: BISOPROLOL FUMARATE
     Indication: ATRIAL FIBRILLATION
     Dosage: 3 MG, QD
     Route: 048
     Dates: start: 20171129
  17. APIXABAN [Suspect]
     Active Substance: APIXABAN
     Indication: CEREBROVASCULAR ACCIDENT PROPHYLAXIS
     Dosage: 5 MG, BID
     Route: 048
     Dates: start: 20171129, end: 20180109
  18. FEBUXOSTAT. [Concomitant]
     Active Substance: FEBUXOSTAT
     Dosage: UNK
     Dates: start: 20150406
  19. BAYASPIRIN 100 MG [Suspect]
     Active Substance: ASPIRIN
     Indication: ATRIAL FIBRILLATION
     Dosage: 100 MG, QD
     Route: 048
     Dates: start: 20151104, end: 20180109
  20. ATELEC [Concomitant]
     Active Substance: CILNIDIPINE
  21. OLMETEC [Concomitant]
     Active Substance: OLMESARTAN MEDOXOMIL
     Dosage: UNK
     Dates: start: 20150406
  22. OLMETEC [Concomitant]
     Active Substance: OLMESARTAN MEDOXOMIL

REACTIONS (18)
  - Multiple organ dysfunction syndrome [Fatal]
  - Echocardiogram abnormal [Not Recovered/Not Resolved]
  - Heart rate increased [Not Recovered/Not Resolved]
  - Acute coronary syndrome [Not Recovered/Not Resolved]
  - Loss of consciousness [Not Recovered/Not Resolved]
  - Dyspnoea [Not Recovered/Not Resolved]
  - Convulsions local [Not Recovered/Not Resolved]
  - Hypokinesia [Not Recovered/Not Resolved]
  - Hypoxic-ischaemic encephalopathy [Fatal]
  - Ventricular hypokinesia [Not Recovered/Not Resolved]
  - Cardio-respiratory arrest [Fatal]
  - Hyperkinetic heart syndrome [Not Recovered/Not Resolved]
  - Cerebral disorder [None]
  - Akinesia [Not Recovered/Not Resolved]
  - Stress cardiomyopathy [Not Recovered/Not Resolved]
  - Arrhythmia [Not Recovered/Not Resolved]
  - Pulmonary congestion [Not Recovered/Not Resolved]
  - Respiratory arrest [Not Recovered/Not Resolved]

NARRATIVE: CASE EVENT DATE: 20171129
